FAERS Safety Report 18812002 (Version 1)
Quarter: 2021Q1

REPORT INFORMATION
  Report Type: Spontaneous
  Country: DE (occurrence: DE)
  Receive Date: 20210129
  Receipt Date: 20210129
  Transmission Date: 20210419
  Serious: Yes (Other)
  Sender: FDA-Public Use
  Company Number: DE-ASTRAZENECA-2021A014111

PATIENT
  Age: 458 Month
  Sex: Male

DRUGS (18)
  1. GLIMEPERIDE [Concomitant]
     Active Substance: GLIMEPIRIDE
  2. ATORVASTATIN [Concomitant]
     Active Substance: ATORVASTATIN
  3. RIVAROXABAN [Concomitant]
     Active Substance: RIVAROXABAN
  4. VITAMIN D [Concomitant]
     Active Substance: VITAMIN D NOS
  5. XIPAMID [Concomitant]
     Active Substance: XIPAMIDE
  6. PROCORALAN [Concomitant]
     Active Substance: IVABRADINE
  7. METFORMIN [Concomitant]
     Active Substance: METFORMIN HYDROCHLORIDE
  8. TORASEMIDE [Concomitant]
     Active Substance: TORSEMIDE
  9. RAMIPRIL. [Concomitant]
     Active Substance: RAMIPRIL
  10. MILGAMMA [Concomitant]
  11. AMIODARON [Concomitant]
     Active Substance: AMIODARONE
  12. FORXIGA [Suspect]
     Active Substance: DAPAGLIFLOZIN
     Indication: TYPE 2 DIABETES MELLITUS
     Dosage: 10.0MG UNKNOWN
     Route: 048
  13. ASA [Concomitant]
     Active Substance: ASPIRIN
  14. AMIODARONE [Concomitant]
     Active Substance: AMIODARONE
     Dosage: 200 MG UNTIL 08?DEC?2013, THEN FROM 09?DEC?2013 AMIODARONE 200 MG
  15. IVABRADINE [Concomitant]
     Active Substance: IVABRADINE
  16. ENTRESTO [Concomitant]
     Active Substance: SACUBITRIL\VALSARTAN
     Dosage: 24 MG/ 26 MG
  17. EPLERENONE. [Concomitant]
     Active Substance: EPLERENONE
  18. XARELTO [Concomitant]
     Active Substance: RIVAROXABAN

REACTIONS (4)
  - Coronary artery disease [Unknown]
  - Ischaemic cardiomyopathy [Unknown]
  - Atrial fibrillation [Unknown]
  - Hypertension [Unknown]

NARRATIVE: CASE EVENT DATE: 200302
